FAERS Safety Report 12127843 (Version 1)
Quarter: 2016Q1

REPORT INFORMATION
  Report Type: Spontaneous
  Country: US (occurrence: US)
  Receive Date: 20160229
  Receipt Date: 20160229
  Transmission Date: 20160526
  Serious: Yes (Hospitalization)
  Sender: FDA-Public Use
  Company Number: US-EGALET US INC-US-2016EGA000117

PATIENT

DRUGS (2)
  1. OXYCODONE HYDROCHLORIDE. [Suspect]
     Active Substance: OXYCODONE HYDROCHLORIDE
     Indication: ARTHRALGIA
     Dosage: UNK DF, UNK
     Route: 048
  2. MORPHINE [Suspect]
     Active Substance: MORPHINE
     Indication: ARTHRALGIA
     Dosage: 1 MG EVERY 4 HOURS
     Route: 042

REACTIONS (6)
  - Hypokalaemia [Unknown]
  - Abdominal distension [Recovered/Resolved]
  - Colonic pseudo-obstruction [Recovered/Resolved]
  - Drug ineffective [Unknown]
  - Gastrointestinal sounds abnormal [Unknown]
  - Diarrhoea [Recovered/Resolved]
